FAERS Safety Report 11009454 (Version 2)
Quarter: 2015Q2

REPORT INFORMATION
  Report Type: Spontaneous
  Country: JP (occurrence: JP)
  Receive Date: 20150410
  Receipt Date: 20150430
  Transmission Date: 20150821
  Serious: Yes (Death, Hospitalization, Other)
  Sender: FDA-Public Use
  Company Number: JP-AMGEN-JPNOT2015034869

PATIENT
  Age: 73 Year
  Sex: Female
  Weight: 42 kg

DRUGS (9)
  1. REMERON [Concomitant]
     Active Substance: MIRTAZAPINE
     Indication: DEPRESSION
     Dosage: 7.5 MG, QD
     Route: 048
  2. PRALIA [Suspect]
     Active Substance: DENOSUMAB
     Indication: OSTEOPOROSIS
     Dosage: 60 MG, ONCE
     Route: 058
     Dates: start: 20150213, end: 20150213
  3. ALFACALCIDOL [Concomitant]
     Active Substance: ALFACALCIDOL
     Dosage: UNK
  4. DOGMATYL [Concomitant]
     Active Substance: SULPIRIDE
     Indication: DEPRESSION
     Dosage: 25 MG, QD
     Route: 048
  5. ALCADOL [Concomitant]
     Indication: OSTEOPOROSIS
     Dosage: 0.5 MUG, QD
     Route: 048
  6. CARBOCISTEINE [Concomitant]
     Active Substance: CARBOCYSTEINE
     Indication: PRODUCT USED FOR UNKNOWN INDICATION
     Dosage: UNK
  7. CELECOX [Concomitant]
     Active Substance: CELECOXIB
     Indication: PRODUCT USED FOR UNKNOWN INDICATION
     Dosage: UNK
  8. ELCITONIN [Concomitant]
     Active Substance: ELCATONIN
     Indication: BACK PAIN
     Dosage: 20 IU, QD
     Dates: start: 20150213, end: 20150213
  9. BISOLVON [Concomitant]
     Active Substance: BROMHEXINE HYDROCHLORIDE
     Indication: BRONCHITIS CHRONIC
     Dosage: 4 MG, TID
     Route: 048

REACTIONS (6)
  - Cardiac failure acute [Fatal]
  - Renal tubular acidosis [Fatal]
  - Pneumoperitoneum [Not Recovered/Not Resolved]
  - Respiratory failure [Fatal]
  - Hypophosphataemia [Not Recovered/Not Resolved]
  - Hypocalcaemia [Not Recovered/Not Resolved]

NARRATIVE: CASE EVENT DATE: 20150304
